FAERS Safety Report 7506916-1 (Version None)
Quarter: 2011Q2

REPORT INFORMATION
  Report Type: 
  Country: None (occurrence: None)
  Receive Date: 20110526
  Receipt Date: 20110517
  Transmission Date: 20111010
  Serious: Yes (Hospitalization, Other)
  Sender: FDA-Public Use
  Company Number: PHFR2011IE03174

PATIENT
  Sex: Female

DRUGS (2)
  1. CLOZARIL [Suspect]
     Indication: SCHIZOPHRENIA
     Route: 048
     Dates: start: 20051027
  2. CLOZARIL [Suspect]
     Dosage: OVERDOSE
     Route: 048

REACTIONS (7)
  - DISORIENTATION [None]
  - MYOCARDIAL ISCHAEMIA [None]
  - CONFUSIONAL STATE [None]
  - AGITATION [None]
  - LOSS OF CONSCIOUSNESS [None]
  - DROOLING [None]
  - OVERDOSE [None]
